FAERS Safety Report 10668254 (Version 1)
Quarter: 2014Q4

REPORT INFORMATION
  Report Type: Spontaneous
  Country: FR (occurrence: FR)
  Receive Date: 20141222
  Receipt Date: 20141222
  Transmission Date: 20150529
  Serious: Yes (Hospitalization)
  Sender: FDA-Public Use
  Company Number: FR-PFIZER INC-2014344659

PATIENT
  Age: 40 Year
  Sex: Female
  Weight: 56 kg

DRUGS (4)
  1. ADVIL [Suspect]
     Active Substance: IBUPROFEN
     Indication: FRACTURE
     Dosage: UNK
     Route: 048
     Dates: start: 20140814, end: 20140821
  2. LEVOTHYROXINE SODIUM. [Concomitant]
     Active Substance: LEVOTHYROXINE SODIUM
     Indication: AUTOIMMUNE THYROIDITIS
  3. ADVIL [Suspect]
     Active Substance: IBUPROFEN
     Indication: BREAST PAIN
     Dosage: UNK
     Route: 048
     Dates: start: 20140824, end: 20140824
  4. MOBIC [Concomitant]
     Active Substance: MELOXICAM
     Indication: ANKYLOSING SPONDYLITIS

REACTIONS (2)
  - Vascular purpura [Recovered/Resolved]
  - Breast abscess [Recovering/Resolving]

NARRATIVE: CASE EVENT DATE: 20140817
